FAERS Safety Report 23742829 (Version 1)
Quarter: 2024Q2

REPORT INFORMATION
  Report Type: Report from Study
  Country: CA (occurrence: CA)
  Receive Date: 20240415
  Receipt Date: 20240415
  Transmission Date: 20240715
  Serious: Yes (Hospitalization)
  Sender: FDA-Public Use
  Company Number: CA-MYLANLABS-2024M1033543

PATIENT
  Sex: Female

DRUGS (1)
  1. CLOZAPINE [Suspect]
     Active Substance: CLOZAPINE
     Indication: Product used for unknown indication
     Dosage: UNK, (MOST RECENT START DATE IS ON OR ABOUT 20-NOV-2008)
     Route: 065
     Dates: start: 200811, end: 20240326

REACTIONS (1)
  - Hospitalisation [Unknown]
